FAERS Safety Report 12666965 (Version 4)
Quarter: 2016Q4

REPORT INFORMATION
  Report Type: Report from Study
  Country: DE (occurrence: DE)
  Receive Date: 20160819
  Receipt Date: 20161129
  Transmission Date: 20170207
  Serious: Yes (Other)
  Sender: FDA-Public Use
  Company Number: PHHY2016DE113271

PATIENT
  Sex: Male
  Weight: 80.5 kg

DRUGS (6)
  1. COSENTYX [Suspect]
     Active Substance: SECUKINUMAB
     Dosage: 300 MG, UNK PER APPLICATION
     Route: 065
     Dates: start: 20160802
  2. COSENTYX [Suspect]
     Active Substance: SECUKINUMAB
     Dosage: 300 MG, UNK PER APPLICATION
     Route: 065
     Dates: start: 20160602
  3. COSENTYX [Suspect]
     Active Substance: SECUKINUMAB
     Dosage: 300 MG, UNK PER APPLICATION
     Route: 065
     Dates: start: 20160904
  4. COSENTYX [Suspect]
     Active Substance: SECUKINUMAB
     Dosage: 300 MG, UNK PER APPLICATION
     Route: 065
     Dates: start: 20161006
  5. COSENTYX [Suspect]
     Active Substance: SECUKINUMAB
     Indication: PSORIASIS
     Dosage: 300 MG, UNK PER APPLICATION
     Route: 065
     Dates: start: 20160502
  6. COSENTYX [Suspect]
     Active Substance: SECUKINUMAB
     Dosage: 300 MG, UNK PER APPLICATION
     Route: 065
     Dates: start: 20160702

REACTIONS (4)
  - Hypersensitivity vasculitis [Not Recovered/Not Resolved]
  - Vasculitic ulcer [Not Recovered/Not Resolved]
  - Hypersensitivity vasculitis [Recovered/Resolved]
  - Fixed drug eruption [Unknown]

NARRATIVE: CASE EVENT DATE: 20160720
